FAERS Safety Report 6492265-X (Version None)
Quarter: 2009Q4

REPORT INFORMATION
  Report Type: 
  Country: None (occurrence: None)
  Receive Date: 20091214
  Receipt Date: 20091204
  Transmission Date: 20100525
  Serious: Yes (Hospitalization, Other)
  Sender: FDA-Public Use
  Company Number: PHEH2009US04517

PATIENT
  Sex: Female

DRUGS (1)
  1. GLEEVEC [Suspect]
     Indication: CHRONIC MYELOID LEUKAEMIA
     Dosage: 400 MG, QD
     Route: 048
     Dates: start: 20090428

REACTIONS (7)
  - BURNING SENSATION [None]
  - EYE MOVEMENT DISORDER [None]
  - HYDROCEPHALUS [None]
  - NAUSEA [None]
  - PERIORBITAL OEDEMA [None]
  - PHLEBITIS [None]
  - TREMOR [None]
